FAERS Safety Report 5190380-4 (Version None)
Quarter: 2006Q4

REPORT INFORMATION
  Report Type: 
  Country: None (occurrence: None)
  Receive Date: 20061222
  Receipt Date: 20061207
  Transmission Date: 20070319
  Serious: Yes (Death)
  Sender: FDA-Public Use
  Company Number: JP-AVENTIS-200613831JP

PATIENT
  Age: 73 Year
  Sex: Male
  Weight: 51.5 kg

DRUGS (7)
  1. KETEK [Suspect]
     Indication: PNEUMONIA
     Route: 048
     Dates: start: 20061205, end: 20061205
  2. BUFFERIN                           /00002701/ [Concomitant]
     Indication: CEREBRAL INFARCTION
     Route: 048
     Dates: start: 20020521, end: 20061205
  3. MAGNESIUM OXIDE [Concomitant]
     Indication: CONSTIPATION
     Route: 048
     Dates: start: 20020521, end: 20061205
  4. NITRODERM [Concomitant]
     Indication: ANGINA PECTORIS
     Dosage: DOSE: 1 SHEET
     Route: 062
     Dates: start: 20020521, end: 20061205
  5. SENNARIDE [Concomitant]
     Indication: CONSTIPATION
     Dosage: DOSE: 2 TABLETS
     Route: 048
     Dates: start: 20020521, end: 20061205
  6. LENDORMIN [Concomitant]
     Indication: INSOMNIA
     Dosage: DOSE: 0.5 TABLET
     Route: 048
     Dates: start: 20020521, end: 20061205
  7. CONSPIT [Concomitant]
     Indication: ANGINA PECTORIS
     Dosage: DOSE: 2 TABLETS
     Route: 048
     Dates: start: 20061129, end: 20061205

REACTIONS (1)
  - ANAPHYLACTIC SHOCK [None]
